FAERS Safety Report 14562833 (Version 1)
Quarter: 2018Q1

REPORT INFORMATION
  Report Type: Spontaneous
  Country: DE (occurrence: DE)
  Receive Date: 20180222
  Receipt Date: 20180222
  Transmission Date: 20180509
  Serious: Yes (Other)
  Sender: FDA-Public Use
  Company Number: DE-BAYER-2017-181251

PATIENT
  Age: 35 Year
  Sex: Female
  Weight: 50 kg

DRUGS (1)
  1. QLAIRA FILMTABLETTEN [Suspect]
     Active Substance: DIENOGEST\ESTRADIOL VALERATE
     Indication: CONTRACEPTION
     Dosage: UNK
     Route: 048
     Dates: start: 201701, end: 201709

REACTIONS (5)
  - Pregnancy on oral contraceptive [Recovered/Resolved]
  - Cervical incompetence [None]
  - Amniorrhexis [None]
  - Drug ineffective [None]
  - Premature delivery [None]

NARRATIVE: CASE EVENT DATE: 201705
